FAERS Safety Report 5218144-3 (Version None)
Quarter: 2007Q1

REPORT INFORMATION
  Report Type: 
  Country: None (occurrence: None)
  Receive Date: 20070124
  Receipt Date: 20070116
  Transmission Date: 20070707
  Serious: Yes (Congenital Anomaly, Other)
  Sender: FDA-Public Use
  Company Number: GB-ALLERGAN-0700053US

PATIENT
  Sex: Female

DRUGS (3)
  1. PREDNISOLONE ACETATE [Suspect]
     Indication: DRUG USE FOR UNKNOWN INDICATION
  2. ERYTHROMYCIN [Suspect]
     Indication: ROSACEA
  3. INSULIN [Concomitant]
     Indication: DRUG USE FOR UNKNOWN INDICATION

REACTIONS (2)
  - PREGNANCY [None]
  - STILLBIRTH [None]
